FAERS Safety Report 8174467-X (Version None)
Quarter: 2012Q1

REPORT INFORMATION
  Report Type: 
  Country: None (occurrence: None)
  Receive Date: 20120229
  Receipt Date: 20120221
  Transmission Date: 20120608
  Serious: Yes (Other)
  Sender: FDA-Public Use
  Company Number: US-ASTRAZENECA-2012SE12033

PATIENT
  Age: 85 Year
  Sex: Male
  Weight: 83.9 kg

DRUGS (4)
  1. CRESTOR [Suspect]
     Indication: CARDIOVASCULAR EVENT PROPHYLAXIS
     Route: 048
     Dates: start: 20110101
  2. METOPROLOL TARTRATE [Concomitant]
     Route: 048
  3. WARFARIN SODIUM [Concomitant]
  4. DIOVAN [Concomitant]

REACTIONS (2)
  - WEIGHT DECREASED [None]
  - OFF LABEL USE [None]
